FAERS Safety Report 7177568-8 (Version None)
Quarter: 2010Q4

REPORT INFORMATION
  Report Type: 
  Country: None (occurrence: None)
  Receive Date: 20101220
  Receipt Date: 20101214
  Transmission Date: 20110411
  Serious: Yes (Life-Threatening, Other)
  Sender: FDA-Public Use
  Company Number: BR-ELI_LILLY_AND_COMPANY-BR201012003755

PATIENT
  Sex: Female
  Weight: 63 kg

DRUGS (3)
  1. BYETTA [Suspect]
     Indication: TYPE 2 DIABETES MELLITUS
     Dosage: 10 UG, DAILY (1/D)
     Route: 058
  2. INSULIN NPH                        /01223208/ [Concomitant]
     Indication: DIABETES MELLITUS
     Dosage: 20 IU, EACH EVENING
     Route: 058
  3. GLUCOFORMIN [Concomitant]
     Dosage: 800 MG, 2/D

REACTIONS (7)
  - APPARENT DEATH [None]
  - BLOOD PRESSURE DECREASED [None]
  - FREQUENT BOWEL MOVEMENTS [None]
  - INTENTIONAL DRUG MISUSE [None]
  - MONOPLEGIA [None]
  - MOVEMENT DISORDER [None]
  - VOMITING [None]
